FAERS Safety Report 22178003 (Version 1)
Quarter: 2023Q2

REPORT INFORMATION
  Report Type: Spontaneous
  Country: US (occurrence: US)
  Receive Date: 20230405
  Receipt Date: 20230405
  Transmission Date: 20230722
  Serious: Yes (Hospitalization, Other)
  Sender: FDA-Public Use
  Company Number: US-002147023-NVSC2023US074130

PATIENT
  Age: 70 Year
  Sex: Male
  Weight: 94.331 kg

DRUGS (1)
  1. ENTRESTO [Suspect]
     Active Substance: SACUBITRIL\VALSARTAN
     Indication: Ejection fraction decreased
     Dosage: 1 DOSAGE FORM, BID (24/26 MG)
     Route: 048
     Dates: start: 20221021, end: 20221024

REACTIONS (2)
  - Gout [Recovered/Resolved with Sequelae]
  - Delirium [Unknown]

NARRATIVE: CASE EVENT DATE: 20221024
